FAERS Safety Report 10177385 (Version 2)
Quarter: 2014Q3

REPORT INFORMATION
  Report Type: Report from Study
  Country: CA (occurrence: CA)
  Receive Date: 20140516
  Receipt Date: 20140716
  Transmission Date: 20150326
  Serious: Yes (Other)
  Sender: FDA-Public Use
  Company Number: CA-ABBVIE-14P-028-1236350-00

PATIENT
  Age: 46 Year
  Sex: Female
  Weight: 78.54 kg

DRUGS (9)
  1. DOVOBET [Suspect]
     Active Substance: BETAMETHASONE\CALCIPOTRIENE
     Indication: PSORIASIS
  2. APO-PANTOPRAZOLE [Concomitant]
     Indication: DYSPEPSIA
     Route: 048
  3. ZOPICLONE [Concomitant]
     Active Substance: ZOPICLONE
     Indication: INSOMNIA
     Route: 048
  4. LIPIDIL EZ [Concomitant]
     Active Substance: FENOFIBRATE
     Indication: BLOOD CHOLESTEROL INCREASED
     Route: 048
  5. CODEINE [Concomitant]
     Active Substance: CODEINE
     Indication: CROHN^S DISEASE
     Route: 048
  6. HUMIRA [Suspect]
     Active Substance: ADALIMUMAB
     Indication: CROHN^S DISEASE
     Route: 058
     Dates: start: 20091210
  7. ASPIRIN. [Concomitant]
     Active Substance: ASPIRIN
     Indication: MYOCARDIAL INFARCTION
     Route: 048
     Dates: start: 2008
  8. NORVASC [Concomitant]
     Active Substance: AMLODIPINE BESYLATE
     Indication: HYPERTENSION
     Route: 048
  9. CIPRALEX [Concomitant]
     Active Substance: ESCITALOPRAM OXALATE
     Indication: DEPRESSION
     Route: 048
     Dates: start: 2008

REACTIONS (16)
  - Back pain [Unknown]
  - Arthralgia [Not Recovered/Not Resolved]
  - Dehydration [Unknown]
  - Tongue disorder [Unknown]
  - Diarrhoea [Unknown]
  - Psoriasis [Not Recovered/Not Resolved]
  - Influenza [Unknown]
  - Joint lock [Unknown]
  - Fistula [Unknown]
  - Weight decreased [Unknown]
  - Stoma site pain [Not Recovered/Not Resolved]
  - Vomiting [Unknown]
  - Neck pain [Unknown]
  - Blood creatine abnormal [Unknown]
  - Speech disorder [Unknown]
  - Arthralgia [Unknown]

NARRATIVE: CASE EVENT DATE: 201305
